FAERS Safety Report 13516486 (Version 3)
Quarter: 2017Q2

REPORT INFORMATION
  Report Type: Spontaneous
  Country: US (occurrence: US)
  Receive Date: 20170505
  Receipt Date: 20170614
  Transmission Date: 20170830
  Serious: Yes (Other)
  Sender: FDA-Public Use
  Company Number: US-WEST-WARD PHARMACEUTICALS CORP.-US-H14001-17-01335

PATIENT
  Age: 15 Month
  Sex: Female

DRUGS (3)
  1. CEFTRIAXONE. [Suspect]
     Active Substance: CEFTRIAXONE
     Indication: THYMUS ABSCESS
     Route: 042
     Dates: start: 20160330, end: 20160407
  2. LINEZOLID. [Suspect]
     Active Substance: LINEZOLID
     Indication: THYMUS ABSCESS
     Route: 048
     Dates: start: 20160407, end: 20160425
  3. CEFTRIAXONE. [Suspect]
     Active Substance: CEFTRIAXONE
     Route: 042
     Dates: start: 20160408, end: 20160425

REACTIONS (2)
  - Bone marrow failure [Recovered/Resolved]
  - Febrile neutropenia [Recovered/Resolved]

NARRATIVE: CASE EVENT DATE: 20160425
